FAERS Safety Report 9684679 (Version 4)
Quarter: 2014Q2

REPORT INFORMATION
  Report Type: Report from Study
  Country: DE (occurrence: DE)
  Receive Date: 20131112
  Receipt Date: 20140619
  Transmission Date: 20141212
  Serious: Yes (Hospitalization)
  Sender: FDA-Public Use
  Company Number: DE-EXELIXIS-XL18413003569

PATIENT
  Age: 78 Year
  Sex: Male
  Weight: 76 kg

DRUGS (7)
  1. XL184 [Suspect]
     Indication: PROSTATE CANCER
     Dosage: 60 MG, QD
     Route: 048
     Dates: start: 20130917, end: 20131020
  2. XL184 [Suspect]
     Dosage: 20 MG, QD
     Route: 048
     Dates: start: 20131021, end: 20131023
  3. XL184 [Suspect]
     Indication: PROSTATE CANCER
     Dosage: 5 MG, BID
     Route: 048
     Dates: start: 20130917, end: 20131023
  4. METFORMIN [Concomitant]
  5. GLIMEPIRIDE [Concomitant]
  6. ELIGARD [Concomitant]
  7. LOPERAMIDE [Concomitant]

REACTIONS (2)
  - Renal failure acute [Recovered/Resolved]
  - Cystitis [Recovered/Resolved]
